FAERS Safety Report 16473370 (Version 1)
Quarter: 2019Q2

REPORT INFORMATION
  Report Type: Spontaneous
  Country: US (occurrence: US)
  Receive Date: 20190625
  Receipt Date: 20190625
  Transmission Date: 20190711
  Serious: Yes (Other)
  Sender: FDA-Public Use
  Company Number: US-AUROBINDO-AUR-APL-2019-035819

PATIENT

DRUGS (4)
  1. FENTANYL. [Suspect]
     Active Substance: FENTANYL
     Indication: EPIDURAL ANALGESIA
     Dosage: 2 MICROGRAM/MILLILITER
     Route: 008
  2. LIDOCAINE. [Suspect]
     Active Substance: LIDOCAINE
     Indication: EPIDURAL ANALGESIA
     Dosage: 3 MILLILITER (LIDOCAINE 1.5% WITH EPINEPHRINE 1:200,000)
     Route: 008
  3. EPINEPHRINE. [Suspect]
     Active Substance: EPINEPHRINE
     Indication: EPIDURAL ANALGESIA
     Dosage: LIDOCAINE 1.5% WITH EPINEPHRINE 1:200,000
     Route: 008
  4. BUPIVACAINE HYDROCHLORIDE. [Suspect]
     Active Substance: BUPIVACAINE HYDROCHLORIDE
     Indication: EPIDURAL ANALGESIA
     Dosage: 15 MILLILITER OF 0.0625%
     Route: 008

REACTIONS (6)
  - Dysphonia [Unknown]
  - Loss of consciousness [Unknown]
  - Arrhythmia [Unknown]
  - Discomfort [Unknown]
  - Syncope [Recovered/Resolved]
  - Tinnitus [Unknown]
